FAERS Safety Report 4553074-1 (Version None)
Quarter: 2005Q1

REPORT INFORMATION
  Report Type: 
  Country: None (occurrence: None)
  Receive Date: 20050114
  Receipt Date: 20030618
  Transmission Date: 20050727
  Serious: Yes (Other)
  Sender: FDA-Public Use
  Company Number: PHBS2003JP06366

PATIENT
  Age: 56 Year
  Sex: Male

DRUGS (1)
  1. LUDIOMIL [Suspect]
     Route: 048

REACTIONS (1)
  - EOSINOPHILIC PNEUMONIA [None]
